FAERS Safety Report 4426677-2 (Version None)
Quarter: 2004Q3

REPORT INFORMATION
  Report Type: 
  Country: None (occurrence: None)
  Receive Date: 20040811
  Receipt Date: 20040730
  Transmission Date: 20050211
  Serious: Yes (Other)
  Sender: FDA-Public Use
  Company Number: 2004IC000535

PATIENT
  Age: 72 Year
  Sex: Male

DRUGS (4)
  1. FLUOROURACIL [Suspect]
     Indication: VOCAL CORD POLYP
     Dosage: 250 MG; INTRAVENOUS
     Route: 042
     Dates: start: 20040726, end: 20040728
  2. LOXOPROFEN (LOXOPROFEN) [Suspect]
     Indication: VOCAL CORD POLYP
     Dosage: 90 MG; ORAL
     Route: 048
     Dates: start: 20040725, end: 20040728
  3. CHOCOLA A [Concomitant]
  4. ANCER (HYDROTHERMAL EXTRACT FROM TUBE) [Concomitant]

REACTIONS (2)
  - HEPATIC FUNCTION ABNORMAL [None]
  - JAUNDICE [None]
